FAERS Safety Report 4350721-4 (Version None)
Quarter: 2004Q2

REPORT INFORMATION
  Report Type: 
  Country: None (occurrence: None)
  Receive Date: 20040428
  Receipt Date: 20040312
  Transmission Date: 20050107
  Serious: Yes (Hospitalization)
  Sender: FDA-Public Use
  Company Number: 6007919

PATIENT
  Age: 80 Year
  Sex: Female

DRUGS (9)
  1. BISOPROLOL(10 MG, TABLETS) (BISOPROLOL) [Suspect]
     Indication: ARRHYTHMIA
     Dosage: 10,000 MG (5 MG, 2 IN 1 D) ORAL
     Route: 048
     Dates: end: 20030612
  2. CONCOR(TABLETS) (BISOPROLOL FUMARATE) [Suspect]
     Indication: MYOCARDIAL ISCHAEMIA
     Dosage: 5,00 MG (5 MG,1 IN 1 D) ORAL : 2,500 MG (2,5, 1 IN 1 D) ORAL
     Route: 048
     Dates: start: 20030614
  3. DIGITOXIN TAB [Suspect]
     Indication: ARRHYTHMIA
     Dosage: 0,0700 MG (0,07 MG, 1 IN 1 D) ORAL
     Route: 048
     Dates: end: 20030822
  4. DIGITOXIN TAB [Suspect]
     Indication: CARDIAC FAILURE
     Dosage: 0,0700 MG (0,07 MG, 1 IN 1 D) ORAL
     Route: 048
     Dates: end: 20030822
  5. SOTALEX MITE(80 MG, TABLETS) (SOTALOL HYDROCHLORIDE) [Suspect]
     Indication: ARRHYTHMIA
     Dosage: 80,000 MG (40 MG, 2 IN 1 D)  ORAL
     Route: 048
     Dates: end: 20030612
  6. VALOCORDIN-DIAZEPAM (SOLUTION) (DIAZEPAM) [Suspect]
     Indication: EXTRASYSTOLES
     Dosage: 20 GTT, 2 IN 1 AS NECESSARY  ORAL
     Route: 048
     Dates: end: 20030612
  7. ARLEVART(TABLETS) (CINNARIZINE, DIMENHYDRINATE) [Concomitant]
  8. THYREOCOMB N (TABLETS) (LEVOTHYROXINE, POTASSIUM IODIDE) [Concomitant]
  9. BISOPROLOL-RATIOPHARM(5 MG, TABLETS) (BISOPROLOL) [Concomitant]

REACTIONS (7)
  - BRADYCARDIA [None]
  - CIRCULATORY COLLAPSE [None]
  - DRUG INTERACTION [None]
  - FALL [None]
  - FEELING ABNORMAL [None]
  - LOSS OF CONSCIOUSNESS [None]
  - VERTIGO [None]
